FAERS Safety Report 4340760-1 (Version None)
Quarter: 2004Q2

REPORT INFORMATION
  Report Type: 
  Country: None (occurrence: None)
  Receive Date: 20040414
  Receipt Date: 20040402
  Transmission Date: 20050107
  Serious: Yes (Death)
  Sender: FDA-Public Use
  Company Number: F01200400688

PATIENT
  Age: 58 Year
  Sex: Female

DRUGS (5)
  1. ARIXTRA [Suspect]
     Indication: SURGERY
     Dosage: 2.5 MG OD SUBCUTANEOUS
     Route: 058
     Dates: start: 20040329, end: 20040330
  2. ARIXTRA [Suspect]
     Indication: THROMBOSIS PROPHYLAXIS
     Dosage: 2.5 MG OD SUBCUTANEOUS
     Route: 058
     Dates: start: 20040329, end: 20040330
  3. CETRAZOL (CEFTEZOLE SODIUM) [Concomitant]
  4. TRANGESIC [Concomitant]
  5. PRIMPERAN TAB [Concomitant]

REACTIONS (5)
  - ABDOMINAL PAIN UPPER [None]
  - HYPOVOLAEMIC SHOCK [None]
  - JAUNDICE [None]
  - METABOLIC ACIDOSIS [None]
  - NAUSEA [None]
